FAERS Safety Report 14813145 (Version 1)
Quarter: 2018Q2

REPORT INFORMATION
  Report Type: Spontaneous
  Country: US (occurrence: US)
  Receive Date: 20180426
  Receipt Date: 20180426
  Transmission Date: 20180711
  Serious: Yes (Other)
  Sender: FDA-Public Use
  Company Number: US-MALLINCKRODT-T201703652

PATIENT
  Sex: Female
  Weight: 34 kg

DRUGS (1)
  1. TEMAZEPAM. [Suspect]
     Active Substance: TEMAZEPAM
     Indication: SLEEP DISORDER
     Dosage: 7.5 MG CAPSULE (APPROXIMATELY 1/2 CAPSULE) ONCE PER DAY
     Route: 048

REACTIONS (5)
  - Incorrect dose administered [Unknown]
  - Drug dependence [Unknown]
  - Off label use [Unknown]
  - Product quality issue [Unknown]
  - Tremor [Unknown]
